FAERS Safety Report 18946260 (Version 1)
Quarter: 2021Q1

REPORT INFORMATION
  Report Type: Spontaneous
  Country: AU (occurrence: AU)
  Receive Date: 20210226
  Receipt Date: 20210226
  Transmission Date: 20210420
  Serious: Yes (Other)
  Sender: FDA-Public Use
  Company Number: AU-UCBSA-2020016326

PATIENT
  Sex: Female
  Weight: 100 kg

DRUGS (5)
  1. KEPPRA [Interacting]
     Active Substance: LEVETIRACETAM
     Indication: PETIT MAL EPILEPSY
  2. KEPPRA [Suspect]
     Active Substance: LEVETIRACETAM
     Indication: EPILEPSY
     Dosage: 1500 MG PER DAY
  3. KEPPRA [Interacting]
     Active Substance: LEVETIRACETAM
     Indication: GENERALISED TONIC-CLONIC SEIZURE
  4. KEPPRA [Interacting]
     Active Substance: LEVETIRACETAM
     Indication: IDIOPATHIC GENERALISED EPILEPSY
  5. KEPPRA [Interacting]
     Active Substance: LEVETIRACETAM
     Indication: EPILEPSY

REACTIONS (36)
  - Muscular weakness [Unknown]
  - Photophobia [Not Recovered/Not Resolved]
  - Liver function test abnormal [Not Recovered/Not Resolved]
  - Teeth brittle [Unknown]
  - Tooth discolouration [Unknown]
  - Clumsiness [Unknown]
  - Sinusitis [Not Recovered/Not Resolved]
  - Alopecia [Unknown]
  - Disturbance in attention [Not Recovered/Not Resolved]
  - Skin disorder [Unknown]
  - Metabolic syndrome [Not Recovered/Not Resolved]
  - Somnolence [Not Recovered/Not Resolved]
  - Urinary tract infection [Unknown]
  - Gait disturbance [Unknown]
  - Balance disorder [Unknown]
  - Anger [Unknown]
  - Nasal congestion [Unknown]
  - Confusional state [Not Recovered/Not Resolved]
  - Memory impairment [Unknown]
  - Weight increased [Unknown]
  - Pruritus [Unknown]
  - Personality change [Unknown]
  - Dizziness [Not Recovered/Not Resolved]
  - Nasopharyngitis [Unknown]
  - Affective disorder [Unknown]
  - Dissociation [Unknown]
  - Neck pain [Not Recovered/Not Resolved]
  - Motor dysfunction [Unknown]
  - Aggression [Unknown]
  - Bone disorder [Unknown]
  - Communication disorder [Not Recovered/Not Resolved]
  - Dysarthria [Unknown]
  - Dysuria [Not Recovered/Not Resolved]
  - Cognitive disorder [Not Recovered/Not Resolved]
  - Irritability [Unknown]
  - Drug interaction [Unknown]
